FAERS Safety Report 8354287-3 (Version None)
Quarter: 2012Q2

REPORT INFORMATION
  Report Type: 
  Country: None (occurrence: None)
  Receive Date: 20120511
  Receipt Date: 20120502
  Transmission Date: 20120825
  Serious: Yes (Death)
  Sender: FDA-Public Use
  Company Number: FR-JNJFOC-20120303755

PATIENT
  Sex: Male
  Weight: 78 kg

DRUGS (7)
  1. FLECAINIDE ACETATE [Concomitant]
     Indication: ARRHYTHMIA
     Dates: start: 19980101
  2. ZYTIGA [Suspect]
     Indication: PROSTATE CANCER
     Route: 048
     Dates: start: 20120126, end: 20120201
  3. PREDNISONE TAB [Concomitant]
     Indication: PROSTATE CANCER
     Route: 065
  4. LYRICA [Concomitant]
     Indication: NEURALGIA
  5. APROVEL [Concomitant]
     Indication: HYPERTENSION
     Dates: start: 19980101
  6. ASPIRIN [Concomitant]
     Indication: ARRHYTHMIA
     Dates: start: 19980101
  7. ANTI-DIABETIC DRUGS [Concomitant]
     Indication: DIABETES MELLITUS
     Route: 065

REACTIONS (1)
  - CARDIAC ARREST [None]
